FAERS Safety Report 20834979 (Version 3)
Quarter: 2022Q2

REPORT INFORMATION
  Report Type: Spontaneous
  Country: US (occurrence: US)
  Receive Date: 20220516
  Receipt Date: 20220527
  Transmission Date: 20220721
  Serious: No
  Sender: FDA-Public Use
  Company Number: US-PFIZER INC-202200698311

PATIENT
  Age: 74 Year
  Sex: Male

DRUGS (1)
  1. EUCRISA [Suspect]
     Active Substance: CRISABOROLE
     Dosage: UNK (APPLY TO AA 1-2 TIMES DAILY)

REACTIONS (2)
  - Off label use [Unknown]
  - Condition aggravated [Unknown]
